FAERS Safety Report 17755885 (Version 1)
Quarter: 2020Q2

REPORT INFORMATION
  Report Type: Spontaneous
  Country: US (occurrence: US)
  Receive Date: 20200506
  Receipt Date: 20200506
  Transmission Date: 20200714
  Serious: Yes (Life-Threatening, Disabling, Other)
  Sender: FDA-Public Use
  Company Number: None

PATIENT
  Age: 63 Year
  Sex: Male
  Weight: 129.27 kg

DRUGS (12)
  1. FLUTICASONE NASAL SPRAY [Concomitant]
     Active Substance: FLUTICASONE
  2. LEVABUTERAL [Concomitant]
  3. OMEPRAZOL [Concomitant]
     Active Substance: OMEPRAZOLE
  4. XIGDUO XR [Concomitant]
     Active Substance: DAPAGLIFLOZIN PROPANEDIOL\METFORMIN HYDROCHLORIDE
  5. VASCEPA [Concomitant]
     Active Substance: ICOSAPENT ETHYL
  6. PROBIOTIC [Concomitant]
     Active Substance: PROBIOTICS NOS
  7. JANUMET XR [Concomitant]
     Active Substance: METFORMIN HYDROCHLORIDE\SITAGLIPTIN PHOSPHATE
  8. IRBESARTAN. [Concomitant]
     Active Substance: IRBESARTAN
  9. EQUATE EYE ALLERGY RELIEF DROPS [Suspect]
     Active Substance: NAPHAZOLINE HYDROCHLORIDE\PHENIRAMINE MALEATE
     Indication: DRY EYE
     Dosage: ?          QUANTITY:0.027%/0.315% 15ML;OTHER ROUTE:EYE DROPS?
     Dates: start: 20170617, end: 20190704
  10. ALBUTEROL. [Concomitant]
     Active Substance: ALBUTEROL
  11. MULTI-VITAMIN [Concomitant]
     Active Substance: .ALPHA.-TOCOPHEROL ACETATE, DL-\ASCORBIC ACID\CYANOCOBALAMIN\FLUORIDE ION\FOLIC ACID\NIACIN\PYRIDOXINE\RIBOFLAVIN\THIAMINE\VITAMIN A\VITAMIN D
  12. CHARCOAL [Concomitant]
     Active Substance: ACTIVATED CHARCOAL

REACTIONS (3)
  - Recalled product administered [None]
  - Cerebrovascular accident [None]
  - Ataxia [None]

NARRATIVE: CASE EVENT DATE: 20190623
